FAERS Safety Report 9096471 (Version 1)
Quarter: 2013Q1

REPORT INFORMATION
  Report Type: Spontaneous
  Country: NO (occurrence: NO)
  Receive Date: 20130211
  Receipt Date: 20130211
  Transmission Date: 20140127
  Serious: Yes (Death)
  Sender: FDA-Public Use
  Company Number: 2013SP001934

PATIENT
  Age: 35 Year
  Sex: Male

DRUGS (3)
  1. EPIRUBICIN [Suspect]
     Indication: PRODUCT USED FOR UNKNOWN INDICATION
  2. OXALIPLATIN [Suspect]
     Indication: PRODUCT USED FOR UNKNOWN INDICATION
  3. XELODA [Suspect]
     Indication: PRODUCT USED FOR UNKNOWN INDICATION

REACTIONS (2)
  - Drug ineffective [Fatal]
  - Malignant neoplasm progression [Fatal]
